FAERS Safety Report 15001286 (Version 1)
Quarter: 2018Q2

REPORT INFORMATION
  Report Type: Spontaneous
  Country: US (occurrence: US)
  Receive Date: 20180523
  Receipt Date: 20180523
  Transmission Date: 20180711
  Serious: Yes (Other)
  Sender: FDA-Public Use
  Company Number: None

PATIENT
  Age: 52 Year
  Sex: Male
  Weight: 86.4 kg

DRUGS (1)
  1. OCREVUS [Suspect]
     Active Substance: OCRELIZUMAB
     Indication: MULTIPLE SCLEROSIS
     Dosage: 600 MG Q6MONTHS; INTRAVENOUS DRIP?
     Route: 041

REACTIONS (3)
  - Dyspnoea [None]
  - Headache [None]
  - Chest discomfort [None]

NARRATIVE: CASE EVENT DATE: 20180523
